FAERS Safety Report 15673876 (Version 1)
Quarter: 2018Q4

REPORT INFORMATION
  Report Type: Report from Study
  Country: JP (occurrence: JP)
  Receive Date: 20181129
  Receipt Date: 20181129
  Transmission Date: 20190205
  Serious: Yes (Other)
  Sender: FDA-Public Use
  Company Number: PHHY2013JP168261

PATIENT
  Age: 62 Year
  Sex: Female
  Weight: 47 kg

DRUGS (10)
  1. XELODA [Suspect]
     Active Substance: CAPECITABINE
     Indication: PRODUCT USED FOR UNKNOWN INDICATION
     Dosage: 2400 MG,
     Route: 048
     Dates: start: 20111111, end: 20120105
  2. XELODA [Suspect]
     Active Substance: CAPECITABINE
     Dosage: 2400 MG,
     Route: 048
     Dates: start: 20120127
  3. TAMOXIFEN CITRATE. [Concomitant]
     Active Substance: TAMOXIFEN CITRATE
     Indication: PRODUCT USED FOR UNKNOWN INDICATION
     Dosage: 20 MG,
     Route: 048
     Dates: start: 20111111
  4. DIOVAN [Concomitant]
     Active Substance: VALSARTAN
     Indication: HYPERTENSION
     Route: 048
  5. KERATINAMIN [Concomitant]
     Active Substance: UREA
     Indication: PROPHYLAXIS
     Route: 050
     Dates: start: 20111111, end: 20111215
  6. ZOMETA [Suspect]
     Active Substance: ZOLEDRONIC ACID
     Indication: METASTASES TO BONE
     Route: 041
  7. TYKERB [Suspect]
     Active Substance: LAPATINIB DITOSYLATE
     Indication: BREAST CANCER
     Dosage: 1250 MG,
     Route: 048
     Dates: start: 20111111
  8. PYDOXAL [Concomitant]
     Active Substance: PYRIDOXAL
     Indication: PROPHYLAXIS
     Route: 048
     Dates: start: 20111111
  9. FERROUS SULFATE. [Concomitant]
     Active Substance: FERROUS SULFATE
     Indication: ANAEMIA
     Route: 048
     Dates: start: 20110816, end: 20120419
  10. ARTIST [Concomitant]
     Active Substance: CARVEDILOL
     Indication: HYPERTENSION
     Route: 048

REACTIONS (5)
  - Palmar-plantar erythrodysaesthesia syndrome [Not Recovered/Not Resolved]
  - Insomnia [Recovering/Resolving]
  - Diarrhoea [Recovered/Resolved]
  - Paronychia [Recovered/Resolved]
  - Renal disorder [Not Recovered/Not Resolved]

NARRATIVE: CASE EVENT DATE: 20111124
